FAERS Safety Report 4759909-1 (Version None)
Quarter: 2005Q3

REPORT INFORMATION
  Report Type: 
  Country: None (occurrence: None)
  Receive Date: 20050831
  Receipt Date: 20050831
  Transmission Date: 20060218
  Serious: Yes (Hospitalization)
  Sender: FDA-Public Use
  Company Number: None

PATIENT
  Age: 59 Year
  Sex: Male

DRUGS (6)
  1. PHENYTOIN [Suspect]
  2. LIPITOR [Concomitant]
  3. PRINIVIL [Concomitant]
  4. DIVALPROEX SODIUM -DEPAKOTE0 [Concomitant]
  5. ARICEPT [Concomitant]
  6. DILANTIN [Concomitant]

REACTIONS (3)
  - CONFUSIONAL STATE [None]
  - DRUG LEVEL ABOVE THERAPEUTIC [None]
  - SPEECH DISORDER [None]
